FAERS Safety Report 8057242-6 (Version None)
Quarter: 2012Q1

REPORT INFORMATION
  Report Type: 
  Country: None (occurrence: None)
  Receive Date: 20120119
  Receipt Date: 20120113
  Transmission Date: 20120608
  Serious: Yes (Other)
  Sender: FDA-Public Use
  Company Number: PHHY2010BR56705

PATIENT
  Sex: Female

DRUGS (2)
  1. DIOVAN HCT [Suspect]
     Indication: HYPERTENSION
     Dosage: 1 DF, 160/12.5 MG ONE PER DAY
     Route: 048
  2. DIOVAN HCT [Suspect]
     Dosage: 1 DF, (320/12.5 MG ONE PER DAY)
     Route: 048
     Dates: start: 20110401

REACTIONS (7)
  - FEELING HOT [None]
  - PAIN [None]
  - VASODILATATION [None]
  - BURNING SENSATION [None]
  - HYPERTENSION [None]
  - GASTROINTESTINAL DISORDER [None]
  - MEMORY IMPAIRMENT [None]
